FAERS Safety Report 8580363-6 (Version None)
Quarter: 2012Q3

REPORT INFORMATION
  Report Type: 
  Country: None (occurrence: None)
  Receive Date: 20120808
  Receipt Date: 20120801
  Transmission Date: 20120928
  Serious: Yes (Hospitalization)
  Sender: FDA-Public Use
  Company Number: US-JNJFOC-20120714581

PATIENT
  Sex: Male
  Weight: 86.18 kg

DRUGS (3)
  1. CORTICOSTEROIDS [Concomitant]
  2. INFLIXIMAB, RECOMBINANT [Suspect]
     Indication: PSORIASIS
     Route: 042
     Dates: start: 20060219, end: 20120508
  3. TRIAMCINOLONE [Concomitant]
     Indication: PSORIASIS
     Dates: end: 20120613

REACTIONS (1)
  - CORONARY ARTERY DISEASE [None]
